FAERS Safety Report 19887873 (Version 1)
Quarter: 2021Q3

REPORT INFORMATION
  Report Type: Spontaneous
  Country: US (occurrence: US)
  Receive Date: 20210928
  Receipt Date: 20210928
  Transmission Date: 20211014
  Serious: No
  Sender: FDA-Public Use
  Company Number: US-HIKMA PHARMACEUTICALS USA INC.-US-H14001-21-03805

PATIENT
  Sex: Female

DRUGS (3)
  1. DEXAMETHASONE. [Suspect]
     Active Substance: DEXAMETHASONE
     Indication: ORAL LICHEN PLANUS
     Route: 065
     Dates: start: 20210714
  2. DEXAMETHASONE. [Suspect]
     Active Substance: DEXAMETHASONE
     Route: 065
  3. DEXAMETHASONE. [Suspect]
     Active Substance: DEXAMETHASONE
     Route: 048

REACTIONS (5)
  - Oral pain [Unknown]
  - Oral discomfort [Unknown]
  - Condition aggravated [Unknown]
  - Product dose omission issue [Unknown]
  - Oral lichen planus [Unknown]
